FAERS Safety Report 9892064 (Version 1)
Quarter: 2014Q1

REPORT INFORMATION
  Report Type: Spontaneous
  Country: US (occurrence: US)
  Receive Date: 20140212
  Receipt Date: 20140212
  Transmission Date: 20141002
  Serious: Yes (Death)
  Sender: FDA-Public Use
  Company Number: US-GLAXOSMITHKLINE-A1059850A

PATIENT
  Age: 58 Year
  Sex: Male

DRUGS (2)
  1. VOTRIENT [Suspect]
     Indication: RENAL CELL CARCINOMA STAGE IV
     Dates: start: 201312
  2. UNSPECIFIED MEDICATIONS [Concomitant]

REACTIONS (3)
  - Renal cell carcinoma [Fatal]
  - Disease progression [Fatal]
  - Hospice care [Unknown]
